FAERS Safety Report 9240623 (Version 1)
Quarter: 2013Q2

REPORT INFORMATION
  Report Type: Spontaneous
  Country: US (occurrence: US)
  Receive Date: 20130418
  Receipt Date: 20130418
  Transmission Date: 20140414
  Serious: Yes (Hospitalization)
  Sender: FDA-Public Use
  Company Number: US-SANOFI-AVENTIS-2012SA094181

PATIENT
  Age: 30 Year
  Sex: Female
  Weight: 62 kg

DRUGS (4)
  1. LOVENOX [Suspect]
     Indication: DEEP VEIN THROMBOSIS
     Route: 065
     Dates: start: 20121112, end: 20121116
  2. DROSPIRENONE/ETHINYLESTRADIOL [Suspect]
     Indication: CONTRACEPTION
     Route: 048
     Dates: start: 201208, end: 201211
  3. DROSPIRENONE/ETHINYLESTRADIOL [Suspect]
  4. LEVOTHYROXINE [Concomitant]
     Indication: HYPOTHYROIDISM
     Route: 048

REACTIONS (2)
  - Pulmonary embolism [Recovering/Resolving]
  - Dyspnoea [Recovering/Resolving]
